FAERS Safety Report 4396630-6 (Version None)
Quarter: 2004Q3

REPORT INFORMATION
  Report Type: 
  Country: None (occurrence: None)
  Receive Date: 20040713
  Receipt Date: 20040713
  Transmission Date: 20050211
  Serious: No
  Sender: FDA-Public Use
  Company Number: None

PATIENT
  Sex: Female
  Weight: 58.9676 kg

DRUGS (7)
  1. SEREVENT [Suspect]
     Indication: ASTHMA
     Dosage: 1 BLISTE 2X/DAY RESPIRATORY
     Route: 055
     Dates: start: 20000515, end: 20040623
  2. SEREVENT [Suspect]
     Indication: CHRONIC OBSTRUCTIVE AIRWAYS DISEASE
     Dosage: 1 BLISTE 2X/DAY RESPIRATORY
     Route: 055
     Dates: start: 20000515, end: 20040623
  3. QVAR 40 [Concomitant]
  4. PRILOSEC [Concomitant]
  5. ZYRTEC [Concomitant]
  6. FLONASE [Concomitant]
  7. ATROVENT [Concomitant]

REACTIONS (1)
  - SINUS TACHYCARDIA [None]
